FAERS Safety Report 10180648 (Version 1)
Quarter: 2014Q2

REPORT INFORMATION
  Report Type: Spontaneous
  Country: US (occurrence: US)
  Receive Date: 20140519
  Receipt Date: 20140519
  Transmission Date: 20141212
  Serious: No
  Sender: FDA-Public Use
  Company Number: US-AMGEN INC.-USASP2014021332

PATIENT
  Age: 69 Year
  Sex: Female

DRUGS (1)
  1. PROLIA [Suspect]
     Indication: OSTEOPOROSIS
     Dosage: UNK UNK, Q6MO
     Route: 065
     Dates: start: 2012

REACTIONS (8)
  - Abdominal discomfort [Unknown]
  - Gait disturbance [Unknown]
  - Mass [Unknown]
  - Burning sensation [Unknown]
  - Pain [Unknown]
  - Myalgia [Unknown]
  - Pruritus [Unknown]
  - Pain in extremity [Unknown]
